FAERS Safety Report 5218976-1 (Version None)
Quarter: 2007Q1

REPORT INFORMATION
  Report Type: 
  Country: None (occurrence: None)
  Receive Date: 20070125
  Receipt Date: 20070115
  Transmission Date: 20070707
  Serious: Yes (Hospitalization, Other)
  Sender: FDA-Public Use
  Company Number: PHNU2006DE03493

PATIENT
  Age: 37 Year
  Sex: Male
  Weight: 114 kg

DRUGS (6)
  1. LEPONEX [Suspect]
     Indication: SCHIZOPHRENIA
     Dosage: 200 MG/DAY
     Route: 048
     Dates: start: 20060928, end: 20061017
  2. AMISULPRIDE [Concomitant]
     Dosage: 600 MG/DAY
  3. HALDOL [Concomitant]
     Indication: SCHIZOPHRENIA
     Dosage: 5 MG/DAY
     Route: 048
     Dates: start: 20060911, end: 20061015
  4. RISPERIDONE [Concomitant]
     Dosage: 7.5 MG/DAY
  5. SOLIAN [Concomitant]
     Indication: SCHIZOPHRENIA
     Dosage: 600 MG/DAY
     Route: 048
     Dates: start: 20061010
  6. GASTROZEPIN [Concomitant]
     Indication: SALIVARY HYPERSECRETION
     Dosage: 50 MG/DAY
     Route: 048
     Dates: start: 20060928, end: 20061016

REACTIONS (18)
  - ASTHENIA [None]
  - BLOOD CREATINE PHOSPHOKINASE INCREASED [None]
  - BRONCHITIS [None]
  - CHEST PAIN [None]
  - ECHOCARDIOGRAM ABNORMAL [None]
  - ELECTROCARDIOGRAM ABNORMAL [None]
  - HEADACHE [None]
  - LEUKOCYTOSIS [None]
  - LIVER DISORDER [None]
  - MYOCARDITIS [None]
  - PALPITATIONS [None]
  - PERICARDIAL EFFUSION [None]
  - PYREXIA [None]
  - SPLENOMEGALY [None]
  - TACHYCARDIA [None]
  - TRANSAMINASES INCREASED [None]
  - ULTRASOUND SCAN ABNORMAL [None]
  - VIRAL INFECTION [None]
